FAERS Safety Report 18107720 (Version 2)
Quarter: 2020Q3

REPORT INFORMATION
  Report Type: Spontaneous
  Country: DE (occurrence: DE)
  Receive Date: 20200804
  Receipt Date: 20200830
  Transmission Date: 20201103
  Serious: Yes (Other)
  Sender: FDA-Public Use
  Company Number: DE-ROCHE-2650099

PATIENT
  Sex: Female
  Weight: 80 kg

DRUGS (2)
  1. OCREVUS [Suspect]
     Active Substance: OCRELIZUMAB
     Route: 042
     Dates: start: 20200708
  2. OCREVUS [Suspect]
     Active Substance: OCRELIZUMAB
     Indication: MULTIPLE SCLEROSIS
     Dosage: MOST RECENT DOSE ON 08/JUL/2020
     Route: 042
     Dates: start: 20200624

REACTIONS (5)
  - Pharyngeal swelling [Recovering/Resolving]
  - Enlarged uvula [Recovering/Resolving]
  - Vulvovaginal inflammation [Recovered/Resolved]
  - Rhinitis [Recovered/Resolved]
  - Throat irritation [Recovering/Resolving]

NARRATIVE: CASE EVENT DATE: 20200709
